FAERS Safety Report 4612331-0 (Version None)
Quarter: 2005Q1

REPORT INFORMATION
  Report Type: 
  Country: None (occurrence: None)
  Receive Date: 20050316
  Receipt Date: 20050228
  Transmission Date: 20050727
  Serious: Yes (Other)
  Sender: FDA-Public Use
  Company Number: USA050392269

PATIENT
  Age: 72 Year
  Sex: Female

DRUGS (2)
  1. SYMBAX-OLANZAPINE 12MG/FLUOXETINE 25MG(OLANZAPI [Suspect]
     Indication: BIPOLAR DISORDER
  2. AMANTADINE [Concomitant]

REACTIONS (2)
  - BREAST CANCER [None]
  - EXTRAPYRAMIDAL DISORDER [None]
